FAERS Safety Report 24230646 (Version 2)
Quarter: 2024Q4

REPORT INFORMATION
  Report Type: Report from Study
  Country: US (occurrence: US)
  Receive Date: 20240821
  Receipt Date: 20241110
  Transmission Date: 20250115
  Serious: Yes (Hospitalization)
  Sender: SANDOZ
  Company Number: US-SANDOZ-SDZ2024US072513

PATIENT
  Age: 14 Year
  Sex: Male

DRUGS (2)
  1. OMNITROPE [Suspect]
     Active Substance: SOMATROPIN
     Indication: Product used for unknown indication
     Dosage: PEN SIZE REPORTED AS 10 AND DOSING SIZE AD 2.4  MG
     Route: 065
     Dates: start: 20240508
  2. OMNITROPE [Suspect]
     Active Substance: SOMATROPIN
     Indication: Product used for unknown indication
     Dosage: PEN SIZE REPORTED AS 10 AND DOSING SIZE AD 2.4  MG
     Route: 065
     Dates: start: 20240508

REACTIONS (6)
  - Hospitalisation [Unknown]
  - Circumstance or information capable of leading to medication error [Unknown]
  - Wrong technique in device usage process [Unknown]
  - Product dose omission issue [Unknown]
  - Device breakage [Unknown]
  - Device issue [Unknown]

NARRATIVE: CASE EVENT DATE: 20240812
